FAERS Safety Report 24702657 (Version 1)
Quarter: 2024Q4

REPORT INFORMATION
  Report Type: Spontaneous
  Country: US (occurrence: None)
  Receive Date: 20241205
  Receipt Date: 20241205
  Transmission Date: 20250114
  Serious: Yes (Life-Threatening, Hospitalization)
  Sender: Public
  Company Number: None

PATIENT
  Age: 61 Year
  Sex: Male

DRUGS (4)
  1. PREDNISONE [Suspect]
     Active Substance: PREDNISONE
     Indication: Chronic obstructive pulmonary disease
     Dosage: FREQUENCY : DAILY;?
     Route: 048
     Dates: start: 20200428, end: 20200502
  2. ZITHROMAX [Suspect]
     Active Substance: AZITHROMYCIN DIHYDRATE
  3. DABIGATRAN [Suspect]
     Active Substance: DABIGATRAN
  4. VENLAFAXINE [Suspect]
     Active Substance: VENLAFAXINE HYDROCHLORIDE

REACTIONS (10)
  - Agitation [None]
  - Depression [None]
  - Suicide attempt [None]
  - Intentional overdose [None]
  - Abnormal behaviour [None]
  - Anger [None]
  - Anger [None]
  - Aggression [None]
  - Major depression [None]
  - Lung neoplasm malignant [None]

NARRATIVE: CASE EVENT DATE: 20200509
